FAERS Safety Report 9159581 (Version 2)
Quarter: 2013Q1

REPORT INFORMATION
  Report Type: Spontaneous
  Country: JP (occurrence: None)
  Receive Date: 20130219
  Receipt Date: 20130307
  Transmission Date: 20140127
  Serious: No
  Sender: FDA-Public Use
  Company Number: TCI2013A00819

PATIENT
  Sex: 0

DRUGS (1)
  1. ROZEREM TABLETS 8MG (RAMELTEON) [Suspect]
     Route: 048

REACTIONS (1)
  - Convulsion [None]
